FAERS Safety Report 4359421-8 (Version None)
Quarter: 2004Q2

REPORT INFORMATION
  Report Type: 
  Country: None (occurrence: None)
  Receive Date: 20040518
  Receipt Date: 20040407
  Transmission Date: 20050107
  Serious: Yes (Other)
  Sender: FDA-Public Use
  Company Number: 200412653US

PATIENT
  Sex: Male

DRUGS (11)
  1. LOVENOX [Suspect]
     Indication: ANTIPHOSPHOLIPID SYNDROME
     Dates: start: 20030401
  2. COUMADIN [Concomitant]
     Dosage: DOSE: NOT PROVIDED
  3. DILANTIN [Concomitant]
     Dosage: DOSE: NOT PROVIDED
  4. TOPAMAX [Concomitant]
     Dosage: DOSE: NOT PROVIDED
  5. LASIX [Concomitant]
     Dosage: DOSE: NOT PROVIDED
  6. KLONOPIN [Concomitant]
     Dosage: DOSE: NOT PROVIDED
  7. MICRO-K [Concomitant]
     Dosage: DOSE: NOT PROVIDED
  8. LOPRESSOR [Concomitant]
     Dosage: DOSE: NOT PROVIDED
  9. NORVASC [Concomitant]
     Dosage: DOSE: NOT PROVIDED
  10. QUININE [Concomitant]
     Dosage: DOSE: NOT PROVIDED
  11. SERZONE [Concomitant]
     Dosage: DOSE: NOT PROVIDED

REACTIONS (8)
  - AMNESIA [None]
  - BLINDNESS UNILATERAL [None]
  - HAEMORRHAGE [None]
  - INJECTION SITE MASS [None]
  - INJECTION SITE REACTION [None]
  - PHARMACEUTICAL PRODUCT COMPLAINT [None]
  - TRANSIENT ISCHAEMIC ATTACK [None]
  - WEIGHT DECREASED [None]
